FAERS Safety Report 7841170-2 (Version None)
Quarter: 2011Q3

REPORT INFORMATION
  Report Type: 
  Country: None (occurrence: None)
  Receive Date: 20110901
  Receipt Date: 20110120
  Transmission Date: 20111222
  Serious: Yes (Other)
  Sender: FDA-Public Use
  Company Number: 264283USA

PATIENT
  Sex: Male

DRUGS (2)
  1. METOCLOPRAMIDE [Suspect]
  2. METOCLOPRAMIDE [Suspect]

REACTIONS (8)
  - TARDIVE DYSKINESIA [None]
  - MOVEMENT DISORDER [None]
  - CHOREOATHETOSIS [None]
  - PARKINSONISM [None]
  - CHOREA [None]
  - RESTLESS LEGS SYNDROME [None]
  - PARKINSON'S DISEASE [None]
  - DYSARTHRIA [None]
